FAERS Safety Report 18144789 (Version 1)
Quarter: 2020Q3

REPORT INFORMATION
  Report Type: Spontaneous
  Country: US (occurrence: US)
  Receive Date: 20200812
  Receipt Date: 20200812
  Transmission Date: 20201103
  Serious: Yes (Other)
  Sender: FDA-Public Use
  Company Number: None

PATIENT
  Age: 63 Year
  Weight: 60.75 kg

DRUGS (1)
  1. FARGOS HAND SANITIZER [Suspect]
     Active Substance: ALCOHOL
     Indication: ANTIBIOTIC PROPHYLAXIS
     Route: 061
     Dates: start: 20200504, end: 20200504

REACTIONS (3)
  - Rash [None]
  - Urticaria [None]
  - Skin fissures [None]

NARRATIVE: CASE EVENT DATE: 20200504
